FAERS Safety Report 8530225-5 (Version None)
Quarter: 2012Q3

REPORT INFORMATION
  Report Type: 
  Country: None (occurrence: None)
  Receive Date: 20120723
  Receipt Date: 20120720
  Transmission Date: 20120928
  Serious: Yes (Death)
  Sender: FDA-Public Use
  Company Number: PHHY2012CA049319

PATIENT
  Sex: Female

DRUGS (4)
  1. AFINITOR [Suspect]
     Indication: BREAST CANCER METASTATIC
     Dosage: 10 MG, DAILY
     Route: 048
     Dates: start: 20120111
  2. FENTANYL [Concomitant]
     Dosage: UNK
     Dates: end: 20120601
  3. AFINITOR [Suspect]
     Dosage: 5 MG, DAILY
     Route: 048
     Dates: start: 20120321, end: 20120430
  4. HYDROMORFON [Concomitant]
     Dosage: UNK
     Dates: end: 20120501

REACTIONS (1)
  - DEATH [None]
